FAERS Safety Report 16316334 (Version 3)
Quarter: 2021Q1

REPORT INFORMATION
  Report Type: Spontaneous
  Country: US (occurrence: US)
  Receive Date: 20190515
  Receipt Date: 20210108
  Transmission Date: 20210419
  Serious: Yes (Death, Other)
  Sender: FDA-Public Use
  Company Number: US-GLAXOSMITHKLINE-US2019GSK085608

PATIENT
  Age: 75 Year
  Sex: Male

DRUGS (5)
  1. PREVACID 24 HR [Suspect]
     Active Substance: LANSOPRAZOLE
     Indication: GASTROOESOPHAGEAL REFLUX DISEASE
     Dosage: 20 MG, BID
     Route: 048
     Dates: start: 2009
  2. PRILOSEC [Suspect]
     Active Substance: OMEPRAZOLE MAGNESIUM
     Indication: GASTROOESOPHAGEAL REFLUX DISEASE
     Dosage: 20 MG, BID
     Route: 048
     Dates: start: 1990, end: 2006
  3. PRILOSEC OTC [Suspect]
     Active Substance: OMEPRAZOLE MAGNESIUM
     Indication: GASTROOESOPHAGEAL REFLUX DISEASE
     Dosage: 20 MG, BID
     Route: 048
     Dates: start: 2003, end: 2006
  4. PREVACID [Suspect]
     Active Substance: LANSOPRAZOLE
     Indication: GASTROOESOPHAGEAL REFLUX DISEASE
     Dosage: 20 MG, BID
     Route: 048
     Dates: start: 1996, end: 2006
  5. PROTONIX [Suspect]
     Active Substance: PANTOPRAZOLE SODIUM
     Indication: GASTROOESOPHAGEAL REFLUX DISEASE
     Dosage: 40 MG, QD
     Route: 048
     Dates: start: 20041028, end: 2006

REACTIONS (14)
  - End stage renal disease [Unknown]
  - Dialysis [Unknown]
  - Azotaemia [Unknown]
  - Nocturia [Unknown]
  - Acute kidney injury [Unknown]
  - Nephropathy [Unknown]
  - Renal failure [Unknown]
  - Pollakiuria [Unknown]
  - Dysuria [Unknown]
  - Death [Fatal]
  - Chronic kidney disease [Unknown]
  - Renal atrophy [Unknown]
  - Renal disorder [Unknown]
  - Renal cyst [Unknown]

NARRATIVE: CASE EVENT DATE: 2004
